FAERS Safety Report 9115260 (Version 2)
Quarter: 2013Q4

REPORT INFORMATION
  Report Type: Spontaneous
  Country: IT (occurrence: IT)
  Receive Date: 20130225
  Receipt Date: 20131114
  Transmission Date: 20140711
  Serious: Yes (Hospitalization)
  Sender: FDA-Public Use
  Company Number: IT-ROCHE-1194351

PATIENT
  Age: 88 Year
  Sex: Female

DRUGS (6)
  1. VALIUM [Suspect]
     Indication: AGITATION
     Route: 048
     Dates: start: 20110505, end: 20120425
  2. ZOLOFT [Suspect]
     Indication: AGITATION
     Route: 048
     Dates: start: 20110505
  3. ZOLOFT [Suspect]
     Route: 048
     Dates: end: 20120425
  4. LANSOPRAZOLE [Concomitant]
     Route: 065
  5. TRIATEC (ITALY) [Concomitant]
  6. LASIX [Concomitant]

REACTIONS (1)
  - Sopor [Recovering/Resolving]
